FAERS Safety Report 23266995 (Version 1)
Quarter: 2023Q4

REPORT INFORMATION
  Report Type: Spontaneous
  Country: None (occurrence: US)
  Receive Date: 20231206
  Receipt Date: 20231206
  Transmission Date: 20240109
  Serious: No
  Sender: FDA-Public Use
  Company Number: US-Breckenridge Pharmaceutical, Inc.-2149023

PATIENT
  Age: 68 Year
  Sex: Male
  Weight: 79.545 kg

DRUGS (1)
  1. ASENAPINE [Suspect]
     Active Substance: ASENAPINE
     Route: 060

REACTIONS (6)
  - Tongue erythema [Unknown]
  - Product residue present [Unknown]
  - Oral disorder [Unknown]
  - Tongue ulceration [Unknown]
  - Memory impairment [Unknown]
  - Gait disturbance [Unknown]
